FAERS Safety Report 25641139 (Version 2)
Quarter: 2025Q3

REPORT INFORMATION
  Report Type: Spontaneous
  Country: US (occurrence: US)
  Receive Date: 20250804
  Receipt Date: 20250905
  Transmission Date: 20251021
  Serious: No
  Sender: SANOFI AVENTIS
  Company Number: US-SA-2025SA227048

PATIENT
  Age: 63 Year
  Sex: Female

DRUGS (4)
  1. DUPIXENT [Suspect]
     Active Substance: DUPILUMAB
     Indication: Dermatitis atopic
     Dosage: 300 MG, QOW
     Route: 058
     Dates: start: 20250607
  2. IBUPROFEN [Concomitant]
     Active Substance: IBUPROFEN
  3. TACROLIMUS [Concomitant]
     Active Substance: TACROLIMUS
  4. NP THYROID [Concomitant]
     Active Substance: LEVOTHYROXINE\LIOTHYRONINE

REACTIONS (2)
  - Sleep disorder due to a general medical condition [Unknown]
  - Eye infection [Unknown]

NARRATIVE: CASE EVENT DATE: 20250101
